FAERS Safety Report 9802026 (Version 2)
Quarter: 2014Q1

REPORT INFORMATION
  Report Type: Spontaneous
  Country: US (occurrence: US)
  Receive Date: 20140107
  Receipt Date: 20140303
  Transmission Date: 20141002
  Serious: No
  Sender: FDA-Public Use
  Company Number: US-BIOGENIDEC-2013BI120305

PATIENT
  Age: 56 Year
  Sex: Female

DRUGS (2)
  1. TECFIDERA [Suspect]
     Indication: MULTIPLE SCLEROSIS
     Route: 048
     Dates: start: 201310
  2. TECFIDERA [Suspect]
     Indication: MULTIPLE SCLEROSIS
     Route: 048
     Dates: start: 201310

REACTIONS (6)
  - Weight increased [Not Recovered/Not Resolved]
  - Lethargy [Unknown]
  - Migraine [Unknown]
  - Chest pain [Unknown]
  - Diarrhoea [Unknown]
  - Abdominal pain [Not Recovered/Not Resolved]
